FAERS Safety Report 6590689-3 (Version None)
Quarter: 2010Q1

REPORT INFORMATION
  Report Type: 
  Country: None (occurrence: None)
  Receive Date: 20100219
  Receipt Date: 20100210
  Transmission Date: 20100710
  Serious: Yes (Hospitalization)
  Sender: FDA-Public Use
  Company Number: B0633844A

PATIENT
  Sex: Female
  Weight: 48 kg

DRUGS (3)
  1. LAPATINIB [Suspect]
     Indication: BREAST CANCER
     Dosage: 1500MG PER DAY
     Route: 048
     Dates: start: 20100118, end: 20100202
  2. PACLITAXEL [Suspect]
     Indication: BREAST CANCER
     Dosage: 80MGM2 WEEKLY
     Route: 042
     Dates: start: 20100118
  3. CIPROFLOXACIN HCL [Concomitant]
     Indication: FEBRILE NEUTROPENIA
     Dosage: 500MG TWICE PER DAY
     Route: 048
     Dates: start: 20100203, end: 20100208

REACTIONS (3)
  - ASTHENIA [None]
  - DEHYDRATION [None]
  - RENAL FAILURE [None]
